FAERS Safety Report 8516146-2 (Version None)
Quarter: 2012Q3

REPORT INFORMATION
  Report Type: 
  Country: None (occurrence: None)
  Receive Date: 20120717
  Receipt Date: 20120711
  Transmission Date: 20120928
  Serious: Yes (Other)
  Sender: FDA-Public Use
  Company Number: US-BAYER-2012-070921

PATIENT
  Age: 69 Year
  Sex: Male
  Weight: 82.54 kg

DRUGS (3)
  1. UNSPECIFIED FIBER [Concomitant]
     Indication: GASTROINTESTINAL MOTILITY DISORDER
     Dosage: UNK UNK, TID
  2. ALEVE (CAPLET) [Suspect]
     Indication: DIVERTICULUM
  3. ADVIL [Suspect]
     Indication: DIVERTICULUM
     Dosage: 200 MG, BID
     Route: 048
     Dates: start: 20120701

REACTIONS (2)
  - CONSTIPATION [None]
  - RECTAL HAEMORRHAGE [None]
